FAERS Safety Report 15963991 (Version 5)
Quarter: 2019Q2

REPORT INFORMATION
  Report Type: Report from Study
  Country: JP (occurrence: JP)
  Receive Date: 20190214
  Receipt Date: 20190424
  Transmission Date: 20190711
  Serious: Yes (Hospitalization)
  Sender: FDA-Public Use
  Company Number: JP-GE HEALTHCARE LIFE SCIENCES-2018CSU000840

PATIENT

DRUGS (27)
  1. NIFEDIPINE. [Concomitant]
     Active Substance: NIFEDIPINE
     Indication: HYPERTENSION
     Dosage: 10 MG, BID
     Route: 048
     Dates: start: 2008
  2. FEBUXOSTAT. [Concomitant]
     Active Substance: FEBUXOSTAT
     Indication: HYPERURICAEMIA
     Dosage: 20 MG, BID
     Route: 048
     Dates: start: 2012
  3. ADONA [Concomitant]
     Indication: PREMEDICATION
     Dosage: 50 MG, 100/H
     Dates: start: 20190207
  4. IMIDAPRIL [Concomitant]
     Active Substance: IMIDAPRIL
     Indication: HYPERTENSION
     Dosage: 5 MG, BID
     Route: 048
     Dates: start: 2008
  5. ATENOLOL. [Concomitant]
     Active Substance: ATENOLOL
     Indication: HYPERTENSION
     Dosage: 25 MG, QD
     Route: 048
     Dates: start: 2008
  6. BRINZOLAMIDE [Concomitant]
     Active Substance: BRINZOLAMIDE
     Indication: GLAUCOMA
     Dosage: ^1 APP^ (BOTH EYES), BID
     Route: 047
     Dates: start: 20161226
  7. URSO [Concomitant]
     Active Substance: URSODIOL
     Indication: HYPERURICOSURIA
     Dosage: 2 DF, BID
     Dates: start: 201902
  8. VIZAMYL [Suspect]
     Active Substance: FLUTEMETAMOL F-18
     Indication: DEMENTIA ALZHEIMER^S TYPE
     Dosage: UNK UNK, SINGLE
     Route: 065
     Dates: start: 20180809, end: 20180809
  9. ADUCANUMAB [Suspect]
     Active Substance: ADUCANUMAB
     Indication: DEMENTIA ALZHEIMER^S TYPE
     Dosage: UNK
     Route: 065
     Dates: start: 20180207
  10. MAGCOROL P [Concomitant]
     Active Substance: MAGNESIUM CITRATE
     Indication: PREMEDICATION
     Dosage: IP
     Dates: start: 20190206
  11. VIZAMYL [Suspect]
     Active Substance: FLUTEMETAMOL F-18
     Indication: POSITRON EMISSION TOMOGRAM
     Dosage: UNK UNK, SINGLE
     Route: 065
     Dates: start: 20180125, end: 20180125
  12. RABEPRAZOLE SODIUM. [Concomitant]
     Active Substance: RABEPRAZOLE SODIUM
     Indication: GASTROOESOPHAGEAL REFLUX DISEASE
     Dosage: 10 MG, QD
     Route: 048
     Dates: start: 201304
  13. BIFIDOBACTERIUM ANIMALIS [Concomitant]
     Active Substance: BIFIDOBACTERIUM ANIMALIS LACTIS
     Indication: ENTERITIS
     Dosage: 6 MG, TID
     Route: 048
     Dates: start: 200405
  14. TRAVOPROST. [Concomitant]
     Active Substance: TRAVOPROST
     Indication: GLAUCOMA
     Dosage: ^1 APP^ (BOTH EYES), QD
     Route: 047
     Dates: start: 20170103
  15. BRIMONIDINE TARTRATE. [Concomitant]
     Active Substance: BRIMONIDINE TARTRATE
     Indication: GLAUCOMA
     Dosage: ^1 APP^ (BOTH EYES), PRN
     Route: 047
     Dates: start: 20170306
  16. AMLODIPINE BESILATE W/IRBESARTAN [Concomitant]
     Active Substance: AMLODIPINE BESYLATE\IRBESARTAN
     Indication: HYPERTENSION
     Dosage: 1 TABLET, QD
     Route: 048
     Dates: start: 20181027
  17. PARIET [Concomitant]
     Active Substance: RABEPRAZOLE SODIUM
     Indication: GASTROOESOPHAGEAL REFLUX DISEASE
     Dosage: 1 DF, QD
     Dates: start: 201902
  18. URSO [Concomitant]
     Active Substance: URSODIOL
     Indication: GASTROOESOPHAGEAL REFLUX DISEASE
  19. SENNOSIDE [Concomitant]
     Active Substance: SENNOSIDES
     Indication: PREMEDICATION
     Dosage: 2 DF, UNK
     Dates: start: 20190206
  20. MUBEN [Concomitant]
     Indication: PREMEDICATION
     Dosage: 1P/2L OF WATER
     Dates: start: 20190207
  21. URSODEOXYCHOLIC ACID [Concomitant]
     Active Substance: URSODIOL
     Indication: HEPATIC STEATOSIS
     Dosage: 200 MG, BID
     Route: 048
     Dates: start: 200504
  22. BIOFERMIN R [Concomitant]
     Active Substance: DIETARY SUPPLEMENT\PROBIOTICS
     Indication: GASTROOESOPHAGEAL REFLUX DISEASE
     Dosage: 2 DF, BID
     Dates: start: 201902
  23. SOLDEM 3A [Concomitant]
     Active Substance: CARBOHYDRATES\POTASSIUM CHLORIDE\SODIUM CHLORIDE\SODIUM LACTATE
     Indication: PREMEDICATION
     Dosage: 500, 100/H
     Dates: start: 20190207
  24. ADUCANUMAB [Suspect]
     Active Substance: ADUCANUMAB
     Dosage: UNK
     Dates: start: 20190204
  25. AIMIX [Concomitant]
     Active Substance: AMLODIPINE BESYLATE\IRBESARTAN
     Indication: HYPERTENSION
     Dosage: 1 DF, QD
     Dates: start: 201902
  26. BALGIN ANTIFOAMING [Concomitant]
     Indication: PREMEDICATION
     Dosage: UNK
     Route: 048
     Dates: start: 20190207
  27. FEBURIC [Concomitant]
     Active Substance: FEBUXOSTAT
     Indication: HYPERTENSION
     Dosage: 1 DF, QD
     Dates: start: 201902

REACTIONS (2)
  - Large intestine polyp [Recovered/Resolved]
  - Large intestine polyp [Recovered/Resolved]

NARRATIVE: CASE EVENT DATE: 20180219
